FAERS Safety Report 18741110 (Version 1)
Quarter: 2021Q1

REPORT INFORMATION
  Report Type: Spontaneous
  Country: US (occurrence: US)
  Receive Date: 20210114
  Receipt Date: 20210114
  Transmission Date: 20210419
  Serious: No
  Sender: FDA-Public Use
  Company Number: US-CHIASMA-2020CHI00060

PATIENT
  Sex: Female

DRUGS (2)
  1. MYCAPSSA [Suspect]
     Active Substance: OCTREOTIDE
     Dosage: 40 MG, 1X/DAY IN THE EVENING (60 MG TOTAL DAILY DOSE)
     Dates: start: 20201008
  2. MYCAPSSA [Suspect]
     Active Substance: OCTREOTIDE
     Dosage: 20 MG, 1X/DAY IN THE MORNING (60 MG TOTAL DAILY DOSE)
     Route: 048
     Dates: start: 20201008

REACTIONS (1)
  - Alopecia [Not Recovered/Not Resolved]

NARRATIVE: CASE EVENT DATE: 2020
